FAERS Safety Report 12565086 (Version 1)
Quarter: 2016Q3

REPORT INFORMATION
  Report Type: Spontaneous
  Country: US (occurrence: None)
  Receive Date: 20160715
  Receipt Date: 20160715
  Transmission Date: 20161109
  Serious: Yes (Hospitalization)
  Sender: FDA-Public Use
  Company Number: None

PATIENT
  Age: 41 Year
  Sex: Female
  Weight: 68.04 kg

DRUGS (6)
  1. ACETAMINOPEHN [Concomitant]
     Active Substance: ACETAMINOPHEN
  2. LEVETIRACETAM. [Concomitant]
     Active Substance: LEVETIRACETAM
  3. VALPROIC ACID. [Concomitant]
     Active Substance: VALPROIC ACID
  4. FYCOMPA [Suspect]
     Active Substance: PERAMPANEL
     Indication: SEIZURE
     Route: 048
  5. BENZONATATE. [Concomitant]
     Active Substance: BENZONATATE
  6. IBUPROFEN. [Concomitant]
     Active Substance: IBUPROFEN

REACTIONS (4)
  - Aggression [None]
  - Paranoia [None]
  - Hallucination, auditory [None]
  - Agitation [None]

NARRATIVE: CASE EVENT DATE: 20160711
